FAERS Safety Report 8943139 (Version 1)
Quarter: 2012Q4

REPORT INFORMATION
  Report Type: 
  Country: US (occurrence: US)
  Receive Date: 20121204
  Receipt Date: 20121204
  Transmission Date: 20130627
  Serious: Yes (Hospitalization)
  Sender: FDA-Public Use
  Company Number: PHEH2012US023499

PATIENT
  Sex: Male

DRUGS (17)
  1. EXELON PATCH [Suspect]
     Dosage: 9.5 mg, daily
     Route: 062
  2. NAMENDA [Concomitant]
     Dosage: 5 mg, UNK
  3. FAMOTIDINE [Concomitant]
  4. METFORMIN [Concomitant]
  5. ZISCAR [Concomitant]
  6. FISH OIL [Concomitant]
  7. CITALOPRAM [Concomitant]
  8. ISOSORBIDE [Concomitant]
  9. LEVOTHYROXINE [Concomitant]
  10. METOPROLOL TARTRATE [Concomitant]
  11. POTASSIUM CLORIDE [Concomitant]
  12. FUROSEMIDE [Concomitant]
  13. PLAVIX [Concomitant]
     Dosage: 81 mg, UNK
  14. ASPIRIN [Concomitant]
  15. CHANTIX [Concomitant]
  16. METHADONE [Concomitant]
  17. DOCUSATE [Concomitant]

REACTIONS (4)
  - Cardiac failure [Unknown]
  - Patella fracture [Unknown]
  - Pneumonia [Unknown]
  - Fall [Unknown]
